FAERS Safety Report 14684101 (Version 1)
Quarter: 2018Q1

REPORT INFORMATION
  Report Type: Spontaneous
  Country: FR (occurrence: FR)
  Receive Date: 20180327
  Receipt Date: 20180327
  Transmission Date: 20180509
  Serious: Yes (Other)
  Sender: FDA-Public Use
  Company Number: FR-ROCHE-2093557

PATIENT
  Age: 88 Year
  Sex: Male

DRUGS (8)
  1. DEPAKINE [Concomitant]
     Active Substance: VALPROATE SODIUM
     Route: 065
  2. BIOCIDAN [Concomitant]
     Route: 065
  3. ACICLOVIR [Suspect]
     Active Substance: ACYCLOVIR
     Indication: MENINGITIS
     Route: 042
     Dates: start: 20171031, end: 20171109
  4. DAFALGAN [Concomitant]
     Active Substance: ACETAMINOPHEN
     Route: 065
  5. BISOPROLOL [Concomitant]
     Active Substance: BISOPROLOL
     Route: 065
  6. ADENURIC [Concomitant]
     Active Substance: FEBUXOSTAT
     Route: 065
  7. KARDEGIC [Concomitant]
     Active Substance: ASPIRIN DL-LYSINE
     Route: 065
  8. ROVALCYTE [Suspect]
     Active Substance: VALGANCICLOVIR HYDROCHLORIDE
     Indication: OPHTHALMIC HERPES ZOSTER
     Route: 048
     Dates: start: 20171027, end: 20171031

REACTIONS (1)
  - Acute kidney injury [Recovered/Resolved]

NARRATIVE: CASE EVENT DATE: 20171031
